FAERS Safety Report 20245883 (Version 1)
Quarter: 2021Q4

REPORT INFORMATION
  Report Type: Spontaneous
  Country: US (occurrence: None)
  Receive Date: 20211228
  Receipt Date: 20211228
  Transmission Date: 20220303
  Serious: Yes (Hospitalization)
  Sender: FDA-Public Use
  Company Number: None

PATIENT
  Sex: Male

DRUGS (2)
  1. CYTARABINE [Suspect]
     Active Substance: CYTARABINE
     Indication: Acute myeloid leukaemia
     Dosage: OTHER FREQUENCY : BID DAYS 1 - 10;?
     Route: 058
  2. VENCLEXTA [Concomitant]
     Active Substance: VENETOCLAX

REACTIONS (1)
  - COVID-19 [None]
